FAERS Safety Report 5362467-4 (Version None)
Quarter: 2007Q2

REPORT INFORMATION
  Report Type: 
  Country: None (occurrence: None)
  Receive Date: 20070619
  Receipt Date: 20070613
  Transmission Date: 20071010
  Serious: Yes (Other)
  Sender: FDA-Public Use
  Company Number: US-ASTRAZENECA-2007UW14179

PATIENT
  Sex: Female

DRUGS (1)
  1. ARIMIDEX [Suspect]

REACTIONS (2)
  - LIVER DISORDER [None]
  - RENAL DISORDER [None]
